FAERS Safety Report 7710555-7 (Version None)
Quarter: 2011Q3

REPORT INFORMATION
  Report Type: 
  Country: None (occurrence: None)
  Receive Date: 20110825
  Receipt Date: 20110818
  Transmission Date: 20111222
  Serious: Yes (Other)
  Sender: FDA-Public Use
  Company Number: US-PFIZER INC-2007036474

PATIENT
  Sex: Female

DRUGS (2)
  1. NEURONTIN [Suspect]
     Indication: BACK PAIN
  2. NEURONTIN [Suspect]
     Indication: BONE PAIN
     Dosage: 600 MG, 4X/DAY
     Dates: start: 20040101

REACTIONS (11)
  - DEPRESSION [None]
  - RESTLESSNESS [None]
  - RASH [None]
  - DISORIENTATION [None]
  - SUICIDAL IDEATION [None]
  - VISUAL IMPAIRMENT [None]
  - AGITATION [None]
  - AMNESIA [None]
  - DRUG INEFFECTIVE FOR UNAPPROVED INDICATION [None]
  - MARITAL PROBLEM [None]
  - THINKING ABNORMAL [None]
